FAERS Safety Report 4457850-5 (Version None)
Quarter: 2004Q3

REPORT INFORMATION
  Report Type: 
  Country: None (occurrence: None)
  Receive Date: 20040924
  Receipt Date: 20040915
  Transmission Date: 20050211
  Serious: Yes (Hospitalization)
  Sender: FDA-Public Use
  Company Number: 200412104DE

PATIENT
  Age: 58 Year
  Sex: Female

DRUGS (2)
  1. DOCETAXEL [Suspect]
     Indication: GASTRIC CANCER STAGE IV WITH METASTASES
     Route: 042
     Dates: start: 20040819, end: 20040913
  2. CISPLATIN [Suspect]
     Indication: GASTRIC CANCER STAGE IV WITH METASTASES
     Route: 042
     Dates: start: 20040819, end: 20040913

REACTIONS (1)
  - BLOOD CREATININE INCREASED [None]
